FAERS Safety Report 10899579 (Version 1)
Quarter: 2015Q1

REPORT INFORMATION
  Report Type: Spontaneous
  Country: SG (occurrence: SG)
  Receive Date: 20150309
  Receipt Date: 20150309
  Transmission Date: 20150721
  Serious: Yes (Other)
  Sender: FDA-Public Use
  Company Number: PHHY2015SG026902

PATIENT
  Age: 76 Year
  Sex: Female

DRUGS (7)
  1. HYDROCORTISONE. [Suspect]
     Active Substance: HYDROCORTISONE
     Indication: TEMPORAL ARTERITIS
     Route: 042
  2. PREDNISOLONE. [Suspect]
     Active Substance: PREDNISOLONE
     Indication: RHEUMATOID ARTHRITIS
     Dosage: 5 MG, QD
     Route: 065
  3. PREDNISOLONE. [Suspect]
     Active Substance: PREDNISOLONE
     Indication: HEADACHE
     Dosage: 60 MG, QD (1MG/KG/DAY)
     Route: 048
  4. PREDNISOLONE. [Suspect]
     Active Substance: PREDNISOLONE
     Indication: VISUAL ACUITY REDUCED
  5. METHYLPREDNISOLONE. [Suspect]
     Active Substance: METHYLPREDNISOLONE
     Indication: HEADACHE
     Dosage: 1 G, QD
     Route: 048
  6. SULFASALAZINE. [Concomitant]
     Active Substance: SULFASALAZINE
     Indication: RHEUMATOID ARTHRITIS
     Dosage: 3 G, QD
     Route: 065
  7. METHYLPREDNISOLONE. [Suspect]
     Active Substance: METHYLPREDNISOLONE
     Indication: VISUAL ACUITY REDUCED

REACTIONS (10)
  - Visual acuity reduced [Not Recovered/Not Resolved]
  - Vomiting [Recovered/Resolved]
  - Aspergillus infection [Recovering/Resolving]
  - Pupillary reflex impaired [Recovering/Resolving]
  - Vision blurred [Recovering/Resolving]
  - Blindness [Not Recovered/Not Resolved]
  - Nausea [Recovering/Resolving]
  - Eyelid ptosis [Recovering/Resolving]
  - Pupillary disorder [Recovering/Resolving]
  - Headache [Recovered/Resolved]
